FAERS Safety Report 5140944-9 (Version None)
Quarter: 2006Q4

REPORT INFORMATION
  Report Type: 
  Country: None (occurrence: None)
  Receive Date: 20061025
  Receipt Date: 20061025
  Transmission Date: 20070319
  Serious: Yes (Hospitalization)
  Sender: FDA-Public Use
  Company Number: None

PATIENT
  Age: 67 Year
  Sex: Male
  Weight: 157.8518 kg

DRUGS (6)
  1. PROPAFENONE HCL [Suspect]
     Indication: ATRIAL FIBRILLATION
     Dates: start: 20031001
  2. CARVEDILOL [Suspect]
     Dates: start: 20041201
  3. METOPROLOL SUCCINATE EXTENDED RELEASE [Suspect]
     Dates: start: 20060209
  4. LISINOPRIL [Concomitant]
  5. SIMVASTATIN [Concomitant]
  6. WARFARINE [Concomitant]

REACTIONS (6)
  - CARDIAC VENTRICULAR DISORDER [None]
  - HEART RATE DECREASED [None]
  - HEART RATE IRREGULAR [None]
  - SYNCOPE [None]
  - TREATMENT NONCOMPLIANCE [None]
  - WRONG DRUG ADMINISTERED [None]
